FAERS Safety Report 8589597-8 (Version None)
Quarter: 2012Q3

REPORT INFORMATION
  Report Type: 
  Country: None (occurrence: None)
  Receive Date: 20120813
  Receipt Date: 20120808
  Transmission Date: 20120928
  Serious: Yes (Hospitalization)
  Sender: FDA-Public Use
  Company Number: US-ACTELION-A-NJ2012-67640

PATIENT
  Age: 58 Year
  Sex: Female

DRUGS (3)
  1. SILDENAFIL [Concomitant]
  2. COUMADIN [Concomitant]
  3. VENTAVIS [Suspect]
     Indication: PULMONARY ARTERIAL HYPERTENSION
     Dosage: UNK
     Route: 055

REACTIONS (4)
  - NAUSEA [None]
  - COUGH [None]
  - HEADACHE [None]
  - DIALYSIS [None]
